FAERS Safety Report 25527968 (Version 2)
Quarter: 2025Q3

REPORT INFORMATION
  Report Type: Spontaneous
  Country: US (occurrence: US)
  Receive Date: 20250708
  Receipt Date: 20250925
  Transmission Date: 20251020
  Serious: No
  Sender: MADRIGAL PHARMACEUTICALS
  Company Number: US-MADRIGAL PHARMACEUTICALS, INC-2025REZ4036

PATIENT

DRUGS (14)
  1. REZDIFFRA [Suspect]
     Active Substance: RESMETIROM
     Indication: Metabolic dysfunction-associated steatohepatitis
     Dosage: 80 MILLIGRAM, QD
     Route: 048
     Dates: start: 20250322, end: 202505
  2. DEXILANT [Concomitant]
     Active Substance: DEXLANSOPRAZOLE
     Indication: Gastrointestinal disorder
     Dosage: 60 MILLIGRAM, QD
  3. DICYCLOMINE HYDROCHLORIDE [Concomitant]
     Active Substance: DICYCLOMINE HYDROCHLORIDE
     Indication: Gastrointestinal disorder
     Dosage: 10 MILLIGRAM, BID
  4. MELOXICAM [Concomitant]
     Active Substance: MELOXICAM
     Indication: Pain
     Dosage: 15 MILLIGRAM, QD
  5. METHOCARBAMOL [Concomitant]
     Active Substance: METHOCARBAMOL
     Indication: Pain
     Dosage: 750 MILLIGRAM, BID
  6. LEVOTHYROXINE [Concomitant]
     Active Substance: LEVOTHYROXINE
     Indication: Hypothyroidism
     Dosage: 125 MICROGRAM, QD
  7. VITAMIN D [Concomitant]
     Active Substance: VITAMIN D NOS
     Dosage: 1.25 MILLIGRAM, QOD
  8. SINGULAIR [Concomitant]
     Active Substance: MONTELUKAST SODIUM
     Indication: Seasonal allergy
     Dosage: 10 MILLIGRAM, QD
  9. TOPAMAX [Concomitant]
     Active Substance: TOPIRAMATE
     Indication: Pain
  10. TOPAMAX [Concomitant]
     Active Substance: TOPIRAMATE
     Indication: Intracranial pressure increased
  11. ATROPINE\DIPHENOXYLATE [Concomitant]
     Active Substance: ATROPINE\DIPHENOXYLATE
     Indication: Irritable bowel syndrome
  12. DULOXETINE HYDROCHLORIDE [Concomitant]
     Active Substance: DULOXETINE HYDROCHLORIDE
  13. FLONASE [Concomitant]
     Active Substance: FLUTICASONE PROPIONATE
  14. B12 [Concomitant]
     Dosage: 1000 MICROGRAM, QM

REACTIONS (1)
  - Alopecia [Recovering/Resolving]

NARRATIVE: CASE EVENT DATE: 20250301
